FAERS Safety Report 9493402 (Version 4)
Quarter: 2013Q4

REPORT INFORMATION
  Report Type: Report from Study
  Country: VE (occurrence: VE)
  Receive Date: 20130902
  Receipt Date: 20131008
  Transmission Date: 20140711
  Serious: Yes (Other)
  Sender: FDA-Public Use
  Company Number: PHHY2013VE083577

PATIENT
  Age: 38 Year
  Sex: Male

DRUGS (7)
  1. SANDOSTATIN LAR [Suspect]
     Indication: ACROMEGALY
     Dosage: 10 MG, MONTHLY
     Route: 030
     Dates: start: 20100116
  2. SANDOSTATIN LAR [Suspect]
     Dosage: 20 MG, MONTHLY
     Route: 030
     Dates: start: 2010
  3. SANDOSTATIN LAR [Suspect]
     Dosage: 30 MG, MONTHLY
     Route: 030
  4. ANALGESICS [Concomitant]
     Indication: HEADACHE
     Dosage: UNK UKN, UNK
  5. EUTHYROX [Concomitant]
     Indication: HYPOTHYROIDISM
     Dosage: 50 MG, DAILY
     Route: 048
     Dates: start: 2010
  6. GARDENAL//PHENOBARBITAL [Concomitant]
     Indication: CONVULSION
     Dosage: 100 MG, DAILY
     Route: 048
  7. IBUPROFEN [Concomitant]
     Dosage: UNK UKN, UNK

REACTIONS (12)
  - Gastritis [Not Recovered/Not Resolved]
  - Insulin-like growth factor increased [Not Recovered/Not Resolved]
  - Bradycardia [Not Recovered/Not Resolved]
  - Chest pain [Unknown]
  - Dyspnoea [Unknown]
  - Dizziness [Unknown]
  - Fatigue [Unknown]
  - Blood growth hormone increased [Not Recovered/Not Resolved]
  - Swelling [Recovering/Resolving]
  - Abdominal pain upper [Not Recovered/Not Resolved]
  - Injection site pain [Not Recovered/Not Resolved]
  - Needle issue [Unknown]
